FAERS Safety Report 5583663-7 (Version None)
Quarter: 2008Q1

REPORT INFORMATION
  Report Type: 
  Country: None (occurrence: None)
  Receive Date: 20080102
  Receipt Date: 20071218
  Transmission Date: 20080703
  Serious: Yes (Other)
  Sender: FDA-Public Use
  Company Number: B0501098A

PATIENT
  Age: 28 Year
  Sex: Male

DRUGS (3)
  1. LAMIVUDINE [Suspect]
     Indication: HIV INFECTION
     Dates: start: 19991201
  2. EFAVIRENZ [Suspect]
     Indication: HIV INFECTION
     Dates: start: 19991201
  3. STAVUDINE [Suspect]
     Indication: HIV INFECTION
     Dates: start: 19991201

REACTIONS (4)
  - FACTOR VIII INHIBITION [None]
  - HAEMORRHAGE [None]
  - IMMUNE RECONSTITUTION SYNDROME [None]
  - THERAPEUTIC RESPONSE DECREASED [None]
